FAERS Safety Report 13517509 (Version 1)
Quarter: 2017Q2

REPORT INFORMATION
  Report Type: Spontaneous
  Country: US (occurrence: US)
  Receive Date: 20170505
  Receipt Date: 20170505
  Transmission Date: 20170830
  Serious: Yes (Hospitalization)
  Sender: FDA-Public Use
  Company Number: None

PATIENT
  Age: 81 Year
  Sex: Male
  Weight: 70.1 kg

DRUGS (11)
  1. TUMS [Concomitant]
     Active Substance: CALCIUM CARBONATE
  2. CLOBEX [Concomitant]
     Active Substance: CLOBETASOL PROPIONATE
  3. MEGACE [Concomitant]
     Active Substance: MEGESTROL ACETATE
  4. XGEVA [Suspect]
     Active Substance: DENOSUMAB
     Indication: FRACTURE
     Route: 058
     Dates: start: 20160826
  5. RAZADYNE [Concomitant]
     Active Substance: GALANTAMINE HYDROBROMIDE
  6. MEMANTINE. [Concomitant]
     Active Substance: MEMANTINE
  7. MIRALAX [Concomitant]
     Active Substance: POLYETHYLENE GLYCOL 3350
  8. CALCITRIOL. [Concomitant]
     Active Substance: CALCITRIOL
  9. LEXAPRO [Concomitant]
     Active Substance: ESCITALOPRAM OXALATE
  10. PROTONIX [Concomitant]
     Active Substance: PANTOPRAZOLE SODIUM
  11. MVI [Concomitant]
     Active Substance: VITAMINS

REACTIONS (2)
  - Hypocalcaemia [None]
  - Encephalopathy [None]

NARRATIVE: CASE EVENT DATE: 20160930
